FAERS Safety Report 24568609 (Version 2)
Quarter: 2024Q4

REPORT INFORMATION
  Report Type: Report from Study
  Country: FI (occurrence: FI)
  Receive Date: 20241031
  Receipt Date: 20241123
  Transmission Date: 20250115
  Serious: Yes (Hospitalization, Other)
  Sender: ABBVIE
  Company Number: FI-ABBVIE-5982656

PATIENT
  Sex: Male
  Weight: 98 kg

DRUGS (15)
  1. CARBIDOPA\LEVODOPA [Suspect]
     Active Substance: CARBIDOPA\LEVODOPA
     Indication: Product used for unknown indication
     Dosage: MORNING DOSE: 11 ML, CONTINUOUS DOSE: 2.8 ML/H, EXTRA DOSE: 1 ML; 16-HOUR TREATMENT
     Route: 050
     Dates: start: 201711
  2. CARBIDOPA\LEVODOPA [Suspect]
     Active Substance: CARBIDOPA\LEVODOPA
  3. Paracetamol (Panadol forte) [Concomitant]
     Indication: Headache
  4. VITAMIN B12 [Concomitant]
     Active Substance: CYANOCOBALAMIN
     Indication: Product used for unknown indication
  5. VITAMIN D [Concomitant]
     Active Substance: VITAMIN D NOS
     Indication: Product used for unknown indication
  6. ESCITALOPRAM [Concomitant]
     Active Substance: ESCITALOPRAM OXALATE
     Indication: Antidepressant therapy
     Dosage: 20 MILLIGRAM
     Dates: start: 2004
  7. Betahistine dihydrochloride (Betaserc) [Concomitant]
     Indication: Meniere^s disease
     Dosage: START DATE TEXT: ABOUT 10 YEARS AGO
     Dates: start: 2014
  8. Mirabegron (Betmiga) [Concomitant]
     Indication: Urinary tract disorder
     Dosage: 50 MILLIGRAM
  9. ROSUVASTATIN [Concomitant]
     Active Substance: ROSUVASTATIN
     Indication: Coronary artery disease
     Dosage: 20 MILLIGRAM?START DATE TEXT: 10 TO 15 YEARS AGO
  10. Sodium picosulfate monohydrate (Laxoberon) [Concomitant]
     Indication: Constipation
     Dosage: 1 CAPSULE ABOUT EVERY OTHER DAY
  11. BISOPROLOL [Concomitant]
     Active Substance: BISOPROLOL
     Indication: Coronary artery disease
     Dosage: START DATE TEXT: 10 TO15 YEARS AGO?FORM STRENGTH: 2.5 MILLIGRAM
  12. Isosorbide mononitrate (Isangina) [Concomitant]
     Indication: Coronary artery disease
     Dosage: 50 MILLIGRAM?START DATE TEXT: 10 TO 15 YEARS AGO
  13. Furosemide (Furesis) [Concomitant]
     Indication: Product used for unknown indication
     Dosage: FORM STRENGTH 20 MILLIGRAM
  14. RAMIPRIL [Concomitant]
     Active Substance: RAMIPRIL
     Indication: Coronary artery disease
     Dosage: START DATE TEXT: 10-15 YEARS AGO ?FORM STRENGTH: 2.5 MILLIGRAM
  15. CLOPIDOGREL [Concomitant]
     Active Substance: CLOPIDOGREL BISULFATE
     Indication: Thrombosis prophylaxis
     Dosage: FORM STRENGTH  75 MILLIGRAM

REACTIONS (12)
  - Head injury [Recovered/Resolved]
  - Hallucination [Recovered/Resolved]
  - Musculoskeletal stiffness [Unknown]
  - Nervousness [Unknown]
  - Aphasia [Recovered/Resolved]
  - Fall [Recovered/Resolved]
  - Headache [Unknown]
  - Fatigue [Unknown]
  - Dizziness [Unknown]
  - Transient ischaemic attack [Recovered/Resolved]
  - Middle insomnia [Unknown]
  - Cognitive disorder [Unknown]

NARRATIVE: CASE EVENT DATE: 20220701
